FAERS Safety Report 10879677 (Version 1)
Quarter: 2015Q1

REPORT INFORMATION
  Report Type: Spontaneous
  Country: US (occurrence: None)
  Receive Date: 20150224
  Receipt Date: 20150224
  Transmission Date: 20150721
  Serious: Yes (Other)
  Sender: FDA-Public Use
  Company Number: None

PATIENT
  Age: 61 Year
  Sex: Male
  Weight: 71.6 kg

DRUGS (3)
  1. SOVALDI [Concomitant]
     Active Substance: SOFOSBUVIR
  2. RIBASPHERE RIBAPAK [Suspect]
     Active Substance: RIBAVIRIN
     Indication: HEPATITIS C
     Dosage: 1 TABLET
     Route: 048
     Dates: start: 20150222
  3. PEGASYS [Concomitant]
     Active Substance: PEGINTERFERON ALFA-2A

REACTIONS (2)
  - Headache [None]
  - Abdominal pain upper [None]

NARRATIVE: CASE EVENT DATE: 20150222
